FAERS Safety Report 11737614 (Version 1)
Quarter: 2015Q4

REPORT INFORMATION
  Report Type: Spontaneous
  Country: IT (occurrence: IT)
  Receive Date: 20151113
  Receipt Date: 20151113
  Transmission Date: 20160304
  Serious: Yes (Hospitalization)
  Sender: FDA-Public Use
  Company Number: IT-JNJFOC-20151108633

PATIENT
  Age: 77 Year
  Sex: Male

DRUGS (1)
  1. RISPERDAL [Suspect]
     Active Substance: RISPERIDONE
     Indication: PRODUCT USED FOR UNKNOWN INDICATION
     Route: 048
     Dates: start: 20151008, end: 20151014

REACTIONS (3)
  - Aggression [Unknown]
  - Petit mal epilepsy [Unknown]
  - Epilepsy [Unknown]

NARRATIVE: CASE EVENT DATE: 20151014
